FAERS Safety Report 4807059-8 (Version None)
Quarter: 2005Q4

REPORT INFORMATION
  Report Type: 
  Country: None (occurrence: None)
  Receive Date: 20051019
  Receipt Date: 20050707
  Transmission Date: 20060501
  Serious: Yes (Other)
  Sender: FDA-Public Use
  Company Number: EWC051046241

PATIENT
  Age: 44 Year
  Sex: Female
  Weight: 50 kg

DRUGS (3)
  1. GEMZAR [Suspect]
     Indication: NON-SMALL CELL LUNG CANCER
     Dosage: 1560 MG OTHER
     Route: 042
     Dates: start: 20050128, end: 20050421
  2. GRANISETRON [Concomitant]
  3. DEXAMETHASONE [Concomitant]

REACTIONS (4)
  - DRUG INEFFECTIVE [None]
  - GRANULOCYTOPENIA [None]
  - SYNCOPE [None]
  - THROMBOCYTOPENIA [None]
